FAERS Safety Report 24449716 (Version 2)
Quarter: 2024Q4

REPORT INFORMATION
  Report Type: Spontaneous
  Country: US (occurrence: US)
  Receive Date: 20241017
  Receipt Date: 20241030
  Transmission Date: 20250115
  Serious: No
  Sender: LEO PHARM
  Company Number: US-LEO Pharma-374295

PATIENT
  Sex: Male

DRUGS (1)
  1. ADBRY [Suspect]
     Active Substance: TRALOKINUMAB-LDRM
     Indication: Eczema

REACTIONS (4)
  - Rash [Unknown]
  - Pruritus [Unknown]
  - Eczema [Not Recovered/Not Resolved]
  - Dry skin [Unknown]
